FAERS Safety Report 9281049 (Version 5)
Quarter: 2013Q3

REPORT INFORMATION
  Report Type: Report from Study
  Country: FR (occurrence: FR)
  Receive Date: 20130509
  Receipt Date: 20130719
  Transmission Date: 20140515
  Serious: Yes (Hospitalization)
  Sender: FDA-Public Use
  Company Number: FR-AMGEN-FRACT2013026060

PATIENT
  Age: 63 Year
  Sex: Male

DRUGS (13)
  1. PANITUMUMAB [Suspect]
     Indication: BLADDER CANCER
     Dosage: 460 MG, UNK
     Route: 042
     Dates: start: 20130302
  2. METHOTREXATE [Concomitant]
     Indication: BLADDER CANCER
     Dosage: 58 MG, UNK
     Route: 042
     Dates: start: 20130301
  3. DOXORUBICIN [Concomitant]
     Indication: BLADDER CANCER
     Dosage: 58 MG, UNK
     Route: 042
     Dates: start: 20130302
  4. VINBLASTINE [Concomitant]
     Indication: BLADDER CANCER
     Dosage: 5.75 MG, UNK
     Route: 042
     Dates: start: 20130302
  5. CISPLATIN [Concomitant]
     Indication: BLADDER CANCER
     Dosage: 130 MG, UNK
     Route: 042
     Dates: start: 20130302
  6. LERCAN [Concomitant]
     Indication: HYPERTENSION
     Dosage: UNK
     Route: 048
  7. AUGMENTIN [Concomitant]
     Dosage: UNK
     Dates: start: 20130407
  8. CIPROX [Concomitant]
     Dosage: UNK
     Dates: start: 20130407
  9. EUPANTOL [Concomitant]
  10. RED BLOOD CELLS [Concomitant]
     Dosage: UNK
     Dates: start: 20130407
  11. GAVISCON [Concomitant]
     Dosage: UNK UNK, AS NECESSARY
  12. SMECTA [Concomitant]
  13. DOXYCYCLINE [Concomitant]

REACTIONS (1)
  - Febrile bone marrow aplasia [Recovered/Resolved]
